FAERS Safety Report 8771489 (Version 1)
Quarter: 2012Q4

REPORT INFORMATION
  Report Type: 
  Country: US (occurrence: US)
  Receive Date: 20120906
  Receipt Date: 20120906
  Transmission Date: 20130627
  Serious: Yes (Other)
  Sender: FDA-Public Use
  Company Number: US-BAYER-2012-091506

PATIENT
  Age: 36 Year
  Sex: Female
  Weight: 78.46 kg

DRUGS (3)
  1. YASMIN [Suspect]
  2. TERAZOL [Concomitant]
     Dosage: 1 Suppository HS for 3 nights
     Route: 067
  3. ANAPROX [Concomitant]

REACTIONS (1)
  - Thrombophlebitis superficial [None]
